FAERS Safety Report 9866914 (Version 6)
Quarter: 2014Q2

REPORT INFORMATION
  Report Type: Spontaneous
  Country: US (occurrence: None)
  Receive Date: 20140131
  Receipt Date: 20140528
  Transmission Date: 20141212
  Serious: Yes (Life-Threatening, Hospitalization, Disabling, Other)
  Sender: FDA-Public Use
  Company Number: UTC-043850

PATIENT
  Age: 39 Year
  Sex: Male
  Weight: 56.9 kg

DRUGS (3)
  1. TYVASCO [Suspect]
     Indication: PULMONARY ARTERIAL HYPERTENSION
     Dosage: 36-54 MCGS, INHALATION
     Route: 055
     Dates: start: 201111
  2. TYVASCO [Suspect]
     Indication: COR PULMONALE CHRONIC
     Dosage: 36-54 MCGS, INHALATION
     Route: 055
     Dates: start: 201111
  3. TYVASCO [Suspect]
     Indication: UNIVENTRICULAR HEART
     Dosage: 36-54 MCGS, INHALATION
     Route: 055
     Dates: start: 201111

REACTIONS (6)
  - Sepsis [None]
  - Bacteraemia [None]
  - Renal failure acute [None]
  - Subacute endocarditis [None]
  - Cardiac failure [None]
  - Dialysis [None]
